FAERS Safety Report 4512527-2 (Version None)
Quarter: 2004Q4

REPORT INFORMATION
  Report Type: 
  Country: None (occurrence: None)
  Receive Date: 20041124
  Receipt Date: 20041115
  Transmission Date: 20050328
  Serious: No
  Sender: FDA-Public Use
  Company Number: USA040875640

PATIENT
  Age: 36 Year
  Sex: Male
  Weight: 77 kg

DRUGS (9)
  1. STRATTERA [Suspect]
     Indication: ATTENTION DEFICIT/HYPERACTIVITY DISORDER
     Dosage: 18 MG/1 DAY
  2. ZYPREXA [Suspect]
     Indication: BIPOLAR DISORDER
     Dosage: 40 MG AT BEDTIME
  3. ABILIFY [Concomitant]
  4. AMITRIPTYLINE HCL [Concomitant]
  5. BUSPAR [Concomitant]
  6. PAXIL [Concomitant]
  7. DILANTIN [Concomitant]
  8. ACIPHEX [Concomitant]
  9. LIPITOR (AOTRVASTIN CALCIUM) [Concomitant]

REACTIONS (4)
  - AGITATION [None]
  - ALCOHOLISM [None]
  - PHYSICAL ASSAULT [None]
  - THINKING ABNORMAL [None]
